FAERS Safety Report 14788914 (Version 1)
Quarter: 2018Q2

REPORT INFORMATION
  Report Type: Spontaneous
  Country: FR (occurrence: FR)
  Receive Date: 20180423
  Receipt Date: 20180423
  Transmission Date: 20180711
  Serious: Yes (Other)
  Sender: FDA-Public Use
  Company Number: FR-MERCK KGAA-2046258

PATIENT
  Age: 65 Year
  Sex: Female

DRUGS (1)
  1. NOVOTHYROX [Suspect]
     Active Substance: LEVOTHYROXINE SODIUM
     Indication: THYROIDITIS
     Dates: start: 201705

REACTIONS (18)
  - Memory impairment [None]
  - Irritability [None]
  - Asthenia [None]
  - Muscle spasms [Recovering/Resolving]
  - Tri-iodothyronine free decreased [Recovered/Resolved]
  - Fatigue [None]
  - Housebound [None]
  - Vitamin D decreased [Not Recovered/Not Resolved]
  - Heat stroke [None]
  - Abdominal pain [None]
  - Feeling abnormal [None]
  - Loss of personal independence in daily activities [None]
  - Palpitations [None]
  - Diarrhoea [None]
  - Disturbance in attention [None]
  - Insomnia [None]
  - Aphasia [None]
  - Blood cholesterol increased [None]

NARRATIVE: CASE EVENT DATE: 2017
